FAERS Safety Report 17075123 (Version 1)
Quarter: 2019Q4

REPORT INFORMATION
  Report Type: Spontaneous
  Country: US (occurrence: US)
  Receive Date: 20191125
  Receipt Date: 20191125
  Transmission Date: 20200122
  Serious: Yes (Hospitalization)
  Sender: FDA-Public Use
  Company Number: None

PATIENT

DRUGS (9)
  1. PREDNISONE TAB 5MG [Concomitant]
     Active Substance: PREDNISONE
  2. SIROLIMUS. [Suspect]
     Active Substance: SIROLIMUS
     Dosage: ?          OTHER FREQUENCY:EVERY OTHER DAY;?
     Route: 048
  3. ASPIRIN TAB 81MG EC [Concomitant]
  4. WELLBUTRIN [Concomitant]
     Active Substance: BUPROPION HYDROCHLORIDE
  5. LEVOTHYROXIN TAB 125MCG [Concomitant]
  6. NOVOLOG INJ PENFILL [Concomitant]
  7. ATORVASTATIN TAB 80MG [Concomitant]
  8. LANTUS INJ 100/ML [Concomitant]
  9. AMIODARONE TAB 200MG [Concomitant]
     Active Substance: AMIODARONE

REACTIONS (1)
  - Toe amputation [None]
